FAERS Safety Report 10424706 (Version 1)
Quarter: 2014Q3

REPORT INFORMATION
  Report Type: Spontaneous
  Country: US (occurrence: None)
  Receive Date: 20140725
  Receipt Date: 20140725
  Transmission Date: 20150326
  Serious: No
  Sender: FDA-Public Use
  Company Number: AP356-00949-SPO-US

PATIENT
  Age: 55 Year
  Sex: Female
  Weight: 131 kg

DRUGS (7)
  1. NOVOLIN INSULIN (INASULIN) [Concomitant]
  2. SIMVASTATIN (SIMVASTATIN) [Concomitant]
     Active Substance: SIMVASTATIN
  3. QUINAPRIL (QUINAPRIL) [Concomitant]
  4. BELVIQ [Suspect]
     Active Substance: LORCASERIN HYDROCHLORIDE
     Indication: WEIGHT DECREASED
     Route: 048
     Dates: start: 20140623
  5. METOPOROLOL (METOPROLOL) [Concomitant]
  6. LASIX [Concomitant]
     Active Substance: FUROSEMIDE
  7. NITROGLYCERINE (GLYCERYL TRINITRATE [Concomitant]

REACTIONS (3)
  - Nausea [None]
  - Somnolence [None]
  - Dry mouth [None]

NARRATIVE: CASE EVENT DATE: 20140623
